FAERS Safety Report 7329027-7 (Version None)
Quarter: 2011Q1

REPORT INFORMATION
  Report Type: 
  Country: None (occurrence: None)
  Receive Date: 20110225
  Receipt Date: 20110225
  Transmission Date: 20110831
  Serious: Yes (Hospitalization)
  Sender: FDA-Public Use
  Company Number: None

PATIENT
  Age: 59 Year
  Sex: Male
  Weight: 105.6881 kg

DRUGS (1)
  1. PRAVASTATIN SODIUM [Suspect]
     Indication: BLOOD CHOLESTEROL INCREASED
     Dosage: ONE TABLET 1 PER DAY PO
     Route: 048
     Dates: start: 20100923, end: 20110205

REACTIONS (3)
  - TENDONITIS [None]
  - TENDON RUPTURE [None]
  - UNEVALUABLE EVENT [None]
